FAERS Safety Report 17754660 (Version 1)
Quarter: 2020Q2

REPORT INFORMATION
  Report Type: Spontaneous
  Country: US (occurrence: US)
  Receive Date: 20200506
  Receipt Date: 20200506
  Transmission Date: 20200714
  Serious: No
  Sender: FDA-Public Use
  Company Number: US-GLENMARK PHARMACEUTICALS-2020GMK046498

PATIENT

DRUGS (2)
  1. TACROLIMUS. [Suspect]
     Active Substance: TACROLIMUS
     Indication: PRURITUS
     Dosage: UNK, OD (ONCE DAILY)
     Route: 061
     Dates: start: 20200213, end: 20200213
  2. TACROLIMUS. [Suspect]
     Active Substance: TACROLIMUS
     Indication: FUNGAL SKIN INFECTION

REACTIONS (4)
  - Product use in unapproved indication [Unknown]
  - Headache [Recovered/Resolved]
  - Insomnia [Recovered/Resolved]
  - Skin burning sensation [Recovered/Resolved]

NARRATIVE: CASE EVENT DATE: 20200213
